FAERS Safety Report 5659802-6 (Version None)
Quarter: 2008Q1

REPORT INFORMATION
  Report Type: 
  Country: None (occurrence: None)
  Receive Date: 20080311
  Receipt Date: 20070715
  Transmission Date: 20080703
  Serious: No
  Sender: FDA-Public Use
  Company Number: US-BAYER-200712287BCC

PATIENT
  Age: 48 Year
  Sex: Female
  Weight: 59 kg

DRUGS (5)
  1. ALEVE (CAPLET) [Suspect]
     Indication: ARTHRALGIA
     Dosage: AS USED: 220/440  MG  UNIT DOSE: 220 MG
     Route: 048
     Dates: start: 20070714
  2. VITAMINS [Concomitant]
  3. LIBRIUM [Concomitant]
  4. TYLENOL W/ CODEINE [Concomitant]
  5. IRON PILLS [Concomitant]

REACTIONS (1)
  - NO ADVERSE EVENT [None]
